FAERS Safety Report 13061395 (Version 2)
Quarter: 2016Q4

REPORT INFORMATION
  Report Type: Spontaneous
  Country: FR (occurrence: FR)
  Receive Date: 20161226
  Receipt Date: 20161229
  Transmission Date: 20170207
  Serious: Yes (Hospitalization)
  Sender: FDA-Public Use
  Company Number: FR-ROCHE-1871999

PATIENT
  Age: 47 Year
  Sex: Male

DRUGS (11)
  1. DEXAMETHASONE. [Suspect]
     Active Substance: DEXAMETHASONE
     Indication: MENINGITIS BACTERIAL
     Route: 042
     Dates: start: 20150420, end: 20150423
  2. XENETIX [Suspect]
     Active Substance: IOBITRIDOL
     Indication: COMPUTERISED TOMOGRAM
     Route: 042
     Dates: start: 20150420, end: 20150420
  3. BENZYLPENICILLIN [Concomitant]
     Active Substance: PENICILLIN G
  4. DOTAREM [Suspect]
     Active Substance: GADOTERATE MEGLUMINE
     Indication: NUCLEAR MAGNETIC RESONANCE IMAGING
     Route: 042
     Dates: start: 20150422, end: 20150422
  5. LIORESAL [Concomitant]
     Active Substance: BACLOFEN
     Dosage: 2 IN THE MORNING
     Route: 065
  6. LAROXYL [Concomitant]
     Active Substance: AMITRIPTYLINE
     Dosage: 9 DROPS IN THE EVENING
     Route: 065
  7. ROCEPHINE [Suspect]
     Active Substance: CEFTRIAXONE SODIUM
     Indication: MENINGITIS BACTERIAL
     Route: 042
     Dates: start: 20150420, end: 20150430
  8. FRAGMINE [Suspect]
     Active Substance: DALTEPARIN SODIUM
     Indication: THROMBOSIS PROPHYLAXIS
     Route: 058
     Dates: start: 20150420, end: 20150430
  9. TRAMADOL. [Concomitant]
     Active Substance: TRAMADOL
     Dosage: IF REQUIRED
     Route: 065
  10. AMOXICILLIN. [Concomitant]
     Active Substance: AMOXICILLIN
  11. CEFUROXIME. [Concomitant]
     Active Substance: CEFUROXIME

REACTIONS (4)
  - Haemoglobin decreased [Not Recovered/Not Resolved]
  - Thrombocytopenia [Recovering/Resolving]
  - Rash maculo-papular [Recovered/Resolved]
  - Transaminases increased [Recovered/Resolved]

NARRATIVE: CASE EVENT DATE: 20150428
